FAERS Safety Report 7282702-5 (Version None)
Quarter: 2011Q1

REPORT INFORMATION
  Report Type: 
  Country: None (occurrence: None)
  Receive Date: 20110209
  Receipt Date: 20110125
  Transmission Date: 20110831
  Serious: Yes (Hospitalization)
  Sender: FDA-Public Use
  Company Number: FR-BAUSCH-2011BL000432

PATIENT
  Age: 75 Year
  Sex: Male

DRUGS (5)
  1. ATROVENT [Concomitant]
  2. SERESTA /NET/ [Concomitant]
     Route: 048
  3. BRICANYL [Concomitant]
  4. SOLUPRED [Concomitant]
     Route: 048
  5. CARTEOLOL HYDROCHLORIDE [Suspect]
     Indication: PRODUCT USED FOR UNKNOWN INDICATION
     Route: 047
     Dates: start: 20100519, end: 20100519

REACTIONS (3)
  - RIGHT VENTRICULAR FAILURE [None]
  - LEUKOCYTOSIS [None]
  - CHRONIC OBSTRUCTIVE PULMONARY DISEASE [None]
